FAERS Safety Report 6714339-8 (Version None)
Quarter: 2010Q2

REPORT INFORMATION
  Report Type: 
  Country: None (occurrence: None)
  Receive Date: 20100503
  Receipt Date: 20100421
  Transmission Date: 20101027
  Serious: Yes (Other)
  Sender: FDA-Public Use
  Company Number: 1000012911

PATIENT
  Age: 91 Year
  Sex: Female
  Weight: 64 kg

DRUGS (5)
  1. MEMANTINE HCL [Suspect]
     Indication: DEMENTIA ALZHEIMER'S TYPE
     Dosage: PROGRESSIVELY INCREASED TO 20 MG, ORAL; BEHAVIOR DISORDER
     Route: 048
     Dates: start: 20100115
  2. MEMANTINE HCL [Suspect]
     Indication: DEMENTIA ALZHEIMER'S TYPE
     Dosage: 20 MG (20 MG, 1 IN 1 D), ORAL; BEHAVIOR DISORDER
     Route: 048
     Dates: end: 20100220
  3. ARICEPT [Concomitant]
  4. EFFEXOR [Concomitant]
  5. KARDEGIC [Concomitant]

REACTIONS (5)
  - ABNORMAL BEHAVIOUR [None]
  - AGNOSIA [None]
  - ANXIETY [None]
  - CONDITION AGGRAVATED [None]
  - HALLUCINATION [None]
